FAERS Safety Report 8579426-0 (Version None)
Quarter: 2012Q3

REPORT INFORMATION
  Report Type: 
  Country: None (occurrence: None)
  Receive Date: 20120731
  Receipt Date: 20120731
  Transmission Date: 20120928
  Serious: Yes (Death)
  Sender: FDA-Public Use
  Company Number: None

PATIENT
  Sex: Female
  Weight: 29.9 kg

DRUGS (6)
  1. METHOTREXATE [Suspect]
     Dosage: 12 MG
     Dates: end: 20120720
  2. VINCRISTINE SULFATE [Suspect]
     Dosage: 3.1 MG
     Dates: end: 20120720
  3. DAUNORUBICIN HCL [Suspect]
     Dosage: 52 MG
     Dates: end: 20120720
  4. PEG-L-ASPARAGINASE (PEGASPARGASE, ONCOSPAR) [Suspect]
     Dosage: 2680 MG
     Dates: end: 20120716
  5. DEXAMETHASONE [Suspect]
     Dosage: 132 MG
     Dates: end: 20120723
  6. CYTARABINE [Suspect]
     Dosage: 70 MG
     Dates: end: 20120712

REACTIONS (12)
  - BALANCE DISORDER [None]
  - TACHYCARDIA [None]
  - RESUSCITATION [None]
  - SPHINGOMONAS PAUCIMOBILIS INFECTION [None]
  - CLOSTRIDIUM TEST POSITIVE [None]
  - ABDOMINAL DISTENSION [None]
  - LETHARGY [None]
  - PAIN IN JAW [None]
  - HEART RATE DECREASED [None]
  - PYREXIA [None]
  - RECTAL HAEMORRHAGE [None]
  - CONTUSION [None]
